FAERS Safety Report 9826834 (Version 1)
Quarter: 2013Q4

REPORT INFORMATION
  Report Type: Spontaneous
  Country: US (occurrence: None)
  Receive Date: 20131112
  Receipt Date: 20131112
  Transmission Date: 20140711
  Serious: Yes (Other)
  Sender: FDA-Public Use
  Company Number: E2B_00000727

PATIENT
  Age: 65 Year
  Sex: Male
  Weight: 96.62 kg

DRUGS (3)
  1. LISINOPRIL [Suspect]
     Indication: HYPERTENSION
     Dosage: 20 MG (20 MG, 1 IN 1 D), PER ORAL
     Route: 048
     Dates: start: 201208
  2. HYDROCHLOROTHIAZIDE (UNKOWN) [Concomitant]
  3. METFORMIN (UNKOWN) [Concomitant]

REACTIONS (5)
  - Cerebrovascular accident [None]
  - Gait disturbance [None]
  - Dysarthria [None]
  - Limb discomfort [None]
  - Muscle spasms [None]
